FAERS Safety Report 4752275-7 (Version None)
Quarter: 2005Q3

REPORT INFORMATION
  Report Type: 
  Country: None (occurrence: None)
  Receive Date: 20050825
  Receipt Date: 20050714
  Transmission Date: 20060218
  Serious: Yes (Other)
  Sender: FDA-Public Use
  Company Number: 2005SE04116

PATIENT
  Age: 34192 Day
  Sex: Male

DRUGS (6)
  1. SEROQUEL [Suspect]
     Indication: AGITATION
     Route: 048
     Dates: start: 20050309, end: 20050610
  2. AKARIN [Concomitant]
     Indication: DEPRESSION
     Dates: start: 20040419
  3. FUROSEMIDE [Concomitant]
     Indication: CARDIAC FAILURE
     Dates: start: 20050520
  4. IMDUR [Concomitant]
     Indication: ANGINA PECTORIS
     Dates: start: 20050520
  5. HEART MAGNYL [Concomitant]
     Indication: ANGINA PECTORIS
     Dates: start: 20050520
  6. OXAPAX [Concomitant]
     Indication: PSYCHOMOTOR HYPERACTIVITY
     Dates: start: 20050405

REACTIONS (2)
  - LEUKOPENIA [None]
  - NEUTROPENIA [None]
